FAERS Safety Report 24608540 (Version 1)
Quarter: 2024Q4

REPORT INFORMATION
  Report Type: Spontaneous
  Country: FR (occurrence: FR)
  Receive Date: 20241112
  Receipt Date: 20241112
  Transmission Date: 20250115
  Serious: Yes (Other)
  Sender: NOVARTIS
  Company Number: None

PATIENT
  Age: 73 Year
  Sex: Female

DRUGS (2)
  1. KISQALI [Suspect]
     Active Substance: RIBOCICLIB
     Indication: Breast cancer
     Dosage: 4.2 G, QMO
     Route: 048
     Dates: start: 2020, end: 20241003
  2. LETROZOLE [Suspect]
     Active Substance: LETROZOLE
     Indication: Breast cancer
     Dosage: UNK
     Route: 048
     Dates: start: 2020

REACTIONS (1)
  - Gastrointestinal angiodysplasia [Not Recovered/Not Resolved]

NARRATIVE: CASE EVENT DATE: 20240101
